FAERS Safety Report 5323985-8 (Version None)
Quarter: 2007Q2

REPORT INFORMATION
  Report Type: 
  Country: None (occurrence: None)
  Receive Date: 20070509
  Receipt Date: 20070509
  Transmission Date: 20071010
  Serious: Yes (Hospitalization)
  Sender: FDA-Public Use
  Company Number: None

PATIENT
  Age: 52 Year
  Sex: Male

DRUGS (8)
  1. FLUOROURACIL [Suspect]
     Indication: CHEMOTHERAPY
     Dates: start: 20070305, end: 20070309
  2. LEUCOVORIN 40MG IV QD [Suspect]
     Indication: CHEMOTHERAPY
     Dates: start: 20070305, end: 20070309
  3. KLONOPIN [Concomitant]
  4. DEXAMETHASONE 0.5MG TAB [Concomitant]
  5. GUAIFENESIN DM [Concomitant]
  6. MAGIC MOUTHWASH [Concomitant]
  7. SIMVASTATIN [Concomitant]
  8. TRAZODONE HCL [Concomitant]

REACTIONS (3)
  - FEBRILE NEUTROPENIA [None]
  - HYPOTENSION [None]
  - INFLUENZA SEROLOGY POSITIVE [None]
